FAERS Safety Report 26159189 (Version 1)
Quarter: 2025Q4

REPORT INFORMATION
  Report Type: Spontaneous
  Country: US (occurrence: US)
  Receive Date: 20251216
  Receipt Date: 20251216
  Transmission Date: 20260118
  Serious: No
  Sender: SANOFI AVENTIS
  Company Number: US-SA-2025SA371066

PATIENT
  Sex: Female
  Weight: 84.09 kg

DRUGS (4)
  1. DUPIXENT [Suspect]
     Active Substance: DUPILUMAB
     Indication: Dermatitis atopic
     Dosage: 300 MG, QOW
     Route: 058
  2. CLOBETASOL [Concomitant]
     Active Substance: CLOBETASOL
  3. CARVEDILOL [Concomitant]
     Active Substance: CARVEDILOL
  4. VALSARTAN [Concomitant]
     Active Substance: VALSARTAN

REACTIONS (4)
  - Dry skin [Unknown]
  - Pruritus [Unknown]
  - Conjunctivitis [Unknown]
  - Therapeutic response decreased [Unknown]
